FAERS Safety Report 8815204 (Version 1)
Quarter: 2012Q4

REPORT INFORMATION
  Report Type: 
  Country: US (occurrence: US)
  Receive Date: 20120928
  Receipt Date: 20120928
  Transmission Date: 20130627
  Serious: Yes (Hospitalization)
  Sender: FDA-Public Use
  Company Number: US-ASTRAZENECA-2012SE72939

PATIENT
  Age: 6 Year
  Sex: Female
  Weight: 19.1 kg

DRUGS (10)
  1. SYMBICORT [Suspect]
     Indication: MULTIPLE ALLERGIES
     Dosage: 160/4.5 MCG TWO TIMES A DAY
     Route: 055
  2. SYMBICORT [Suspect]
     Indication: PNEUMONIA
     Dosage: 160/4.5 MCG TWO TIMES A DAY
     Route: 055
  3. PULMICORT RESPULES [Suspect]
     Indication: MULTIPLE ALLERGIES
     Route: 055
  4. PULMICORT RESPULES [Suspect]
     Indication: PNEUMONIA
     Route: 055
  5. ALVESCO [Concomitant]
     Indication: MULTIPLE ALLERGIES
     Dosage: ONE PUFF
     Route: 055
  6. ALVESCO [Concomitant]
     Indication: PNEUMONIA
     Dosage: ONE PUFF
     Route: 055
  7. ZYRTEC [Concomitant]
     Indication: MULTIPLE ALLERGIES
     Dosage: ONE TEAS DAILY
     Route: 048
  8. OMEGA 3 [Concomitant]
     Indication: IMMUNE SYSTEM DISORDER
     Route: 048
  9. MULTIVITAMINS [Concomitant]
     Indication: IMMUNE SYSTEM DISORDER
     Dosage: DAILY
     Route: 048
  10. ACIDOPHILUS [Concomitant]
     Indication: FUNGAL INFECTION

REACTIONS (3)
  - Pneumonia [Unknown]
  - Off label use [Unknown]
  - Drug dose omission [Unknown]
